FAERS Safety Report 4465178-2 (Version None)
Quarter: 2004Q3

REPORT INFORMATION
  Report Type: 
  Country: None (occurrence: None)
  Receive Date: 20040928
  Receipt Date: 20040928
  Transmission Date: 20050211
  Serious: Yes (Other)
  Sender: FDA-Public Use
  Company Number: None

PATIENT
  Sex: Male
  Weight: 95.2554 kg

DRUGS (2)
  1. PIROXICAM [Suspect]
     Indication: OSTEOARTHRITIS
     Dosage: 1 CAPSULE DAILY
  2. PIROXICAM [Suspect]
     Indication: SPONDYLITIS
     Dosage: 1 CAPSULE DAILY

REACTIONS (3)
  - CONDITION AGGRAVATED [None]
  - DRUG EFFECT DECREASED [None]
  - PAIN [None]
